FAERS Safety Report 18153121 (Version 6)
Quarter: 2021Q2

REPORT INFORMATION
  Report Type: Spontaneous
  Country: US (occurrence: US)
  Receive Date: 20200815
  Receipt Date: 20210601
  Transmission Date: 20210717
  Serious: Yes (Hospitalization)
  Sender: FDA-Public Use
  Company Number: US-GLAXOSMITHKLINE-US2020AMR160359

PATIENT
  Sex: Female

DRUGS (7)
  1. ZEJULA [Suspect]
     Active Substance: NIRAPARIB
     Dosage: 200 MG
  2. ZEJULA [Suspect]
     Active Substance: NIRAPARIB
     Indication: FALLOPIAN TUBE CANCER
     Dosage: 200 MG, QD
     Dates: start: 20180920
  3. ZEJULA [Suspect]
     Active Substance: NIRAPARIB
     Dosage: 200 MG
  4. ZEJULA [Suspect]
     Active Substance: NIRAPARIB
     Dosage: 200 MG, QD
     Route: 048
  5. ZEJULA [Suspect]
     Active Substance: NIRAPARIB
     Dosage: 100 MG, BID
  6. ZEJULA [Suspect]
     Active Substance: NIRAPARIB
     Dosage: 200 MG
  7. ZEJULA [Suspect]
     Active Substance: NIRAPARIB
     Dosage: 1 DF, QOD

REACTIONS (10)
  - Rotator cuff syndrome [Unknown]
  - Platelet count decreased [Not Recovered/Not Resolved]
  - Dry mouth [Unknown]
  - Adverse drug reaction [Unknown]
  - Ill-defined disorder [Unknown]
  - Insomnia [Unknown]
  - Stomatitis [Unknown]
  - Off label use [Unknown]
  - Constipation [Unknown]
  - Haemoglobin decreased [Unknown]
